FAERS Safety Report 21693612 (Version 2)
Quarter: 2022Q4

REPORT INFORMATION
  Report Type: Other
  Country: US (occurrence: None)
  Receive Date: 20221207
  Receipt Date: 20221213
  Transmission Date: 20230112
  Serious: Yes (Hospitalization)
  Sender: FDA-Public Use
  Company Number: US-ROCHE-3228372

PATIENT
  Age: 36 Year
  Sex: Male
  Weight: 68.100 kg

DRUGS (3)
  1. OCREVUS [Suspect]
     Active Substance: OCRELIZUMAB
     Indication: Relapsing-remitting multiple sclerosis
     Dosage: DATE OF TREATMENT:22/JUN/2022
     Route: 042
     Dates: start: 2018
  2. TAMIFLU [Suspect]
     Active Substance: OSELTAMIVIR PHOSPHATE
     Indication: Influenza
     Dosage: ONGOING NO
     Route: 065
     Dates: start: 202211, end: 202211
  3. CIALIS [Concomitant]
     Active Substance: TADALAFIL

REACTIONS (3)
  - Oxygen saturation decreased [Recovered/Resolved]
  - Influenza [Recovered/Resolved]
  - Dyspnoea [Recovered/Resolved]

NARRATIVE: CASE EVENT DATE: 20221101
